FAERS Safety Report 5598875-6 (Version None)
Quarter: 2008Q1

REPORT INFORMATION
  Report Type: 
  Country: None (occurrence: None)
  Receive Date: 20080122
  Receipt Date: 20080111
  Transmission Date: 20080703
  Serious: Yes (Hospitalization)
  Sender: FDA-Public Use
  Company Number: FR-WYE-H02194808

PATIENT
  Sex: Female

DRUGS (7)
  1. CORDARONE [Suspect]
     Indication: ATRIAL FIBRILLATION
     Route: 048
     Dates: start: 20070410, end: 20070410
  2. CORDARONE [Suspect]
     Route: 048
     Dates: start: 20070411, end: 20070427
  3. CORTANCYL [Concomitant]
     Indication: TEMPORAL ARTERITIS
     Route: 048
     Dates: start: 20051101
  4. KARDEGIC [Concomitant]
     Indication: ANTICOAGULANT THERAPY
     Route: 048
     Dates: start: 20070201
  5. TRIATEC [Concomitant]
     Indication: HYPERTENSION
     Route: 048
     Dates: start: 20070201
  6. PREVISCAN [Concomitant]
     Indication: ANTICOAGULANT THERAPY
     Route: 048
     Dates: start: 20070410, end: 20070422
  7. CALCIPARINE [Concomitant]
     Indication: ANTICOAGULANT THERAPY
     Route: 058
     Dates: start: 20070410

REACTIONS (3)
  - PRURITUS [None]
  - RASH PAPULAR [None]
  - URTICARIA [None]
